FAERS Safety Report 23955302 (Version 1)
Quarter: 2024Q2

REPORT INFORMATION
  Report Type: Spontaneous
  Country: JP (occurrence: JP)
  Receive Date: 20240610
  Receipt Date: 20240610
  Transmission Date: 20240716
  Serious: Yes (Hospitalization)
  Sender: FDA-Public Use
  Company Number: JP-NOVITIUMPHARMA-2024JPNVP00991

PATIENT
  Age: 70 Year
  Sex: Female

DRUGS (3)
  1. PREDNISONE [Suspect]
     Active Substance: PREDNISONE
     Indication: Hypercalcaemic nephropathy
     Route: 048
  2. PREDNISONE [Suspect]
     Active Substance: PREDNISONE
     Dosage: LESS THAN OR EQUAL TO 4MG/DAY
     Route: 048
  3. PREDNISONE [Suspect]
     Active Substance: PREDNISONE
     Dosage: DOSE DECREASED
     Route: 048

REACTIONS (1)
  - Rebound effect [Unknown]
